FAERS Safety Report 25025103 (Version 1)
Quarter: 2025Q1

REPORT INFORMATION
  Report Type: Spontaneous
  Country: FR (occurrence: FR)
  Receive Date: 20250228
  Receipt Date: 20250228
  Transmission Date: 20250409
  Serious: Yes (Other)
  Sender: MYLAN
  Company Number: None

PATIENT
  Age: 65 Year
  Sex: Male
  Weight: 84.7 kg

DRUGS (20)
  1. LANSOPRAZOLE [Suspect]
     Active Substance: LANSOPRAZOLE
     Indication: Gastrooesophageal reflux prophylaxis
     Dosage: 15 MILLIGRAM, QD
     Dates: start: 20241202, end: 20241231
  2. LANSOPRAZOLE [Suspect]
     Active Substance: LANSOPRAZOLE
     Dosage: 15 MILLIGRAM, QD
     Route: 048
     Dates: start: 20241202, end: 20241231
  3. LANSOPRAZOLE [Suspect]
     Active Substance: LANSOPRAZOLE
     Dosage: 15 MILLIGRAM, QD
     Route: 048
     Dates: start: 20241202, end: 20241231
  4. LANSOPRAZOLE [Suspect]
     Active Substance: LANSOPRAZOLE
     Dosage: 15 MILLIGRAM, QD
     Dates: start: 20241202, end: 20241231
  5. VANCOMYCIN [Suspect]
     Active Substance: VANCOMYCIN
     Indication: Bacterial infection
     Dosage: 1.5 GRAM, QD
     Dates: start: 20241210, end: 20241222
  6. VANCOMYCIN [Suspect]
     Active Substance: VANCOMYCIN
     Dosage: 1.5 GRAM, QD
     Route: 042
     Dates: start: 20241210, end: 20241222
  7. VANCOMYCIN [Suspect]
     Active Substance: VANCOMYCIN
     Dosage: 1.5 GRAM, QD
     Route: 042
     Dates: start: 20241210, end: 20241222
  8. VANCOMYCIN [Suspect]
     Active Substance: VANCOMYCIN
     Dosage: 1.5 GRAM, QD
     Dates: start: 20241210, end: 20241222
  9. AMIODARONE [Suspect]
     Active Substance: AMIODARONE
     Indication: Ventricular tachycardia
     Dosage: 200 MILLIGRAM, QD, SCORED TABLET
     Dates: start: 20241128, end: 20250101
  10. AMIODARONE [Suspect]
     Active Substance: AMIODARONE
     Dosage: 200 MILLIGRAM, QD, SCORED TABLET
     Route: 048
     Dates: start: 20241128, end: 20250101
  11. AMIODARONE [Suspect]
     Active Substance: AMIODARONE
     Dosage: 200 MILLIGRAM, QD, SCORED TABLET
     Route: 048
     Dates: start: 20241128, end: 20250101
  12. AMIODARONE [Suspect]
     Active Substance: AMIODARONE
     Dosage: 200 MILLIGRAM, QD, SCORED TABLET
     Dates: start: 20241128, end: 20250101
  13. HEPARIN CALCIUM [Suspect]
     Active Substance: HEPARIN CALCIUM
     Indication: Thrombosis prophylaxis
     Dosage: 4000 INTERNATIONAL UNIT, QD
     Dates: start: 20241221, end: 20250106
  14. HEPARIN CALCIUM [Suspect]
     Active Substance: HEPARIN CALCIUM
     Dosage: 4000 INTERNATIONAL UNIT, QD
     Route: 058
     Dates: start: 20241221, end: 20250106
  15. HEPARIN CALCIUM [Suspect]
     Active Substance: HEPARIN CALCIUM
     Dosage: 4000 INTERNATIONAL UNIT, QD
     Route: 058
     Dates: start: 20241221, end: 20250106
  16. HEPARIN CALCIUM [Suspect]
     Active Substance: HEPARIN CALCIUM
     Dosage: 4000 INTERNATIONAL UNIT, QD
     Dates: start: 20241221, end: 20250106
  17. IOBITRIDOL [Suspect]
     Active Substance: IOBITRIDOL
     Indication: Computerised tomogram
     Dates: start: 20250110, end: 20250110
  18. IOBITRIDOL [Suspect]
     Active Substance: IOBITRIDOL
     Route: 065
     Dates: start: 20250110, end: 20250110
  19. IOBITRIDOL [Suspect]
     Active Substance: IOBITRIDOL
     Route: 065
     Dates: start: 20250110, end: 20250110
  20. IOBITRIDOL [Suspect]
     Active Substance: IOBITRIDOL
     Dates: start: 20250110, end: 20250110

REACTIONS (2)
  - Erythema [Recovered/Resolved]
  - Eosinophilia [Recovering/Resolving]

NARRATIVE: CASE EVENT DATE: 20241222
